FAERS Safety Report 5688939-0 (Version None)
Quarter: 2008Q1

REPORT INFORMATION
  Report Type: 
  Country: None (occurrence: None)
  Receive Date: 20080331
  Receipt Date: 20080319
  Transmission Date: 20080703
  Serious: Yes (Other)
  Sender: FDA-Public Use
  Company Number: US-WYE-H03282908

PATIENT
  Sex: Male
  Weight: 68 kg

DRUGS (5)
  1. TORISEL [Suspect]
     Indication: RENAL CELL CARCINOMA STAGE IV
     Dosage: 25 MG OVER 30 MINUTES
     Route: 042
     Dates: start: 20080319, end: 20080319
  2. ATIVAN [Concomitant]
  3. SENOKOT [Concomitant]
  4. VERAPAMIL [Concomitant]
  5. VICODIN [Concomitant]
     Indication: PAIN

REACTIONS (4)
  - BLOOD PRESSURE DECREASED [None]
  - HYPERSENSITIVITY [None]
  - RASH [None]
  - SKIN DISCOLOURATION [None]
